FAERS Safety Report 23658750 (Version 1)
Quarter: 2024Q1

REPORT INFORMATION
  Report Type: Spontaneous
  Country: US (occurrence: None)
  Receive Date: 20240321
  Receipt Date: 20240321
  Transmission Date: 20240410
  Serious: No
  Sender: FDA-Public Use
  Company Number: None

PATIENT
  Age: 85 Year
  Sex: Male
  Weight: 75 kg

DRUGS (1)
  1. PEMBROLIZUMAB [Suspect]
     Active Substance: PEMBROLIZUMAB

REACTIONS (5)
  - Dyspnoea [None]
  - Bundle branch block right [None]
  - Ejection fraction decreased [None]
  - Chest pain [None]
  - Oxygen saturation decreased [None]

NARRATIVE: CASE EVENT DATE: 20231220
